FAERS Safety Report 8618629-3 (Version None)
Quarter: 2012Q3

REPORT INFORMATION
  Report Type: 
  Country: None (occurrence: None)
  Receive Date: 20120814
  Receipt Date: 20120814
  Transmission Date: 20120928
  Serious: Yes (Disabling)
  Sender: FDA-Public Use
  Company Number: None

PATIENT
  Sex: Female
  Weight: 143 kg

DRUGS (2)
  1. . [Concomitant]
  2. ACCUTANE [Suspect]
     Indication: ACNE
     Dosage: 80 MG 1X/DAY PO
     Route: 048
     Dates: start: 20020101, end: 20030101

REACTIONS (10)
  - MUSCLE SPASMS [None]
  - DYSMENORRHOEA [None]
  - MYALGIA [None]
  - NASAL DRYNESS [None]
  - FATIGUE [None]
  - DEHYDRATION [None]
  - DEPRESSION [None]
  - DRY EYE [None]
  - HEADACHE [None]
  - RECTAL HAEMORRHAGE [None]
